FAERS Safety Report 7066531-3 (Version None)
Quarter: 2010Q4

REPORT INFORMATION
  Report Type: 
  Country: None (occurrence: None)
  Receive Date: 20101027
  Receipt Date: 20100217
  Transmission Date: 20110411
  Serious: No
  Sender: FDA-Public Use
  Company Number: US-WYE-H13648710

PATIENT
  Sex: Female

DRUGS (1)
  1. PREMPRO [Suspect]
     Indication: HORMONE REPLACEMENT THERAPY
     Dosage: 0.3MG/1.5MG DAILY
     Route: 048
     Dates: start: 20100212, end: 20100214

REACTIONS (3)
  - ANXIETY [None]
  - BREAST TENDERNESS [None]
  - VULVOVAGINAL DISCOMFORT [None]
